FAERS Safety Report 4764632-3 (Version None)
Quarter: 2005Q3

REPORT INFORMATION
  Report Type: 
  Country: None (occurrence: None)
  Receive Date: 20050909
  Receipt Date: 20050907
  Transmission Date: 20060218
  Serious: Yes (Hospitalization)
  Sender: FDA-Public Use
  Company Number: DSA_60505_2005

PATIENT
  Age: 4 Year
  Sex: Male
  Weight: 15.9 kg

DRUGS (2)
  1. LAMICTAL [Suspect]
     Route: 048
     Dates: start: 20050101
  2. DIASTAT [Suspect]
     Dosage: 10MG AS REQUIRED
     Route: 054

REACTIONS (9)
  - ABASIA [None]
  - DRUG INEFFECTIVE [None]
  - DRUG INTERACTION [None]
  - DYSSTASIA [None]
  - EATING DISORDER [None]
  - ENCEPHALOPATHY [None]
  - FEELING DRUNK [None]
  - LETHARGY [None]
  - STUPOR [None]
